FAERS Safety Report 5529554-9 (Version None)
Quarter: 2007Q4

REPORT INFORMATION
  Report Type: 
  Country: None (occurrence: None)
  Receive Date: 20071129
  Receipt Date: 20071120
  Transmission Date: 20080405
  Serious: Yes (Hospitalization, Other)
  Sender: FDA-Public Use
  Company Number: US-ELI_LILLY_AND_COMPANY-US200711004874

PATIENT
  Sex: Female

DRUGS (2)
  1. HUMALOG [Suspect]
     Indication: DIABETES MELLITUS
     Dosage: UNK, UNK
     Dates: start: 20060101
  2. LANTUS [Concomitant]
     Dosage: 50 U, EACH MORNING
     Dates: start: 20060101

REACTIONS (2)
  - CARDIAC PACEMAKER INSERTION [None]
  - HOSPITALISATION [None]
